FAERS Safety Report 4650302-9 (Version None)
Quarter: 2005Q2

REPORT INFORMATION
  Report Type: 
  Country: None (occurrence: None)
  Receive Date: 20050428
  Receipt Date: 20050414
  Transmission Date: 20051028
  Serious: Yes (Hospitalization)
  Sender: FDA-Public Use
  Company Number: 2005BI008032

PATIENT
  Age: 41 Year
  Sex: Male

DRUGS (2)
  1. AVONEX [Suspect]
     Indication: MULTIPLE SCLEROSIS
     Dosage: IM
     Route: 030
  2. NATALIZUMAB [Suspect]
     Indication: MULTIPLE SCLEROSIS
     Dosage: IV
     Route: 042
     Dates: start: 20050119

REACTIONS (7)
  - ASTHENIA [None]
  - BLINDNESS [None]
  - COGNITIVE DISORDER [None]
  - DISEASE RECURRENCE [None]
  - DYSARTHRIA [None]
  - IMPAIRED DRIVING ABILITY [None]
  - MULTIPLE SCLEROSIS [None]
